FAERS Safety Report 9053698 (Version 2)
Quarter: 2013Q2

REPORT INFORMATION
  Report Type: Spontaneous
  Country: US (occurrence: US)
  Receive Date: 20130208
  Receipt Date: 20130509
  Transmission Date: 20140414
  Serious: Yes (Hospitalization)
  Sender: FDA-Public Use
  Company Number: US-BAYER-2013-015134

PATIENT
  Age: 20 Year
  Sex: Female

DRUGS (4)
  1. GIANVI [Suspect]
  2. IBUPROFEN [IBUPROFEN] [Concomitant]
  3. TYLENOL [Concomitant]
  4. YAZ [Suspect]

REACTIONS (1)
  - Intracranial venous sinus thrombosis [None]
